FAERS Safety Report 8089794-4 (Version None)
Quarter: 2012Q1

REPORT INFORMATION
  Report Type: 
  Country: None (occurrence: None)
  Receive Date: 20120128
  Receipt Date: 20110713
  Transmission Date: 20120608
  Serious: No
  Sender: FDA-Public Use
  Company Number: US-ABBOTT-11P-163-0838711-00

PATIENT
  Age: 55 Year
  Sex: Male

DRUGS (8)
  1. IBUPROFEN [Concomitant]
     Indication: PAIN
     Dosage: 1-3 TIMES DAILY
     Route: 048
  2. METFFORMIN HYDROCHLORIDE [Concomitant]
     Indication: DIABETES MELLITUS
  3. POTASSIUM [Concomitant]
     Indication: PRODUCT USED FOR UNKNOWN INDICATION
     Dosage: DAILY
     Route: 048
  4. HUMIRA [Suspect]
     Indication: PSORIASIS
     Dates: start: 20110101
  5. ATENOLOL [Concomitant]
     Indication: BLOOD PRESSURE INCREASED
     Dosage: DAILY
  6. AMRIX [Concomitant]
     Indication: PRODUCT USED FOR UNKNOWN INDICATION
     Dosage: AT BEDTIME
     Route: 048
  7. CRESTOR [Concomitant]
     Indication: BLOOD CHOLESTEROL INCREASED
     Dosage: DAILY
  8. DOXAZOSIN [Concomitant]
     Indication: PROSTATOMEGALY
     Dosage: DAILY AT BEDTIME

REACTIONS (2)
  - INJECTION SITE HAEMORRHAGE [None]
  - INJECTION SITE PAIN [None]
